FAERS Safety Report 8352101-3 (Version None)
Quarter: 2012Q2

REPORT INFORMATION
  Report Type: 
  Country: None (occurrence: None)
  Receive Date: 20120509
  Receipt Date: 20120425
  Transmission Date: 20120825
  Serious: Yes (Death)
  Sender: FDA-Public Use
  Company Number: EU-2012-10136

PATIENT
  Sex: Male
  Weight: 52 kg

DRUGS (6)
  1. SAMSCA [Suspect]
     Indication: HYPONATRAEMIA
     Dosage: SEE IMAGE
     Route: 048
     Dates: start: 20110112, end: 20110525
  2. SAMSCA [Suspect]
     Indication: HYPONATRAEMIA
     Dosage: SEE IMAGE
     Route: 048
     Dates: start: 20110109, end: 20110110
  3. SAMSCA [Suspect]
     Indication: HYPONATRAEMIA
     Dosage: SEE IMAGE
     Route: 048
     Dates: start: 20110525, end: 20120301
  4. AMIODARONE HCL [Concomitant]
  5. CLOPIDEGREL [Concomitant]
  6. TAMSULOSIN HCL [Concomitant]

REACTIONS (1)
  - DEATH [None]
